FAERS Safety Report 5375576-0 (Version None)
Quarter: 2007Q2

REPORT INFORMATION
  Report Type: 
  Country: None (occurrence: None)
  Receive Date: 20070629
  Receipt Date: 20070619
  Transmission Date: 20071010
  Serious: Yes (Other)
  Sender: FDA-Public Use
  Company Number: US-PFIZER INC-2007051520

PATIENT
  Sex: Female
  Weight: 65 kg

DRUGS (3)
  1. LYRICA [Suspect]
     Indication: FIBROMYALGIA
  2. PREVACID [Concomitant]
  3. ZYRTEC [Concomitant]

REACTIONS (7)
  - INCREASED APPETITE [None]
  - NEURALGIA [None]
  - RASH [None]
  - SCAR [None]
  - SKIN INFLAMMATION [None]
  - SKIN ULCER [None]
  - WEIGHT INCREASED [None]
